FAERS Safety Report 21943562 (Version 1)
Quarter: 2023Q1

REPORT INFORMATION
  Report Type: Spontaneous
  Country: US (occurrence: US)
  Receive Date: 20230202
  Receipt Date: 20230202
  Transmission Date: 20230417
  Serious: No
  Sender: FDA-Public Use
  Company Number: US-BRISTOL-MYERS SQUIBB COMPANY-2023-014456

PATIENT
  Age: 78 Year
  Sex: Female
  Weight: 60.4 kg

DRUGS (12)
  1. REVLIMID [Suspect]
     Active Substance: LENALIDOMIDE
     Indication: Plasma cell myeloma
     Dosage: 21 DAYS ON 7 DAYS OFF
     Route: 048
     Dates: start: 20180717, end: 20190410
  2. REVLIMID [Suspect]
     Active Substance: LENALIDOMIDE
     Dosage: 28 DAYS CONTINUOUS
     Route: 048
     Dates: start: 20200210, end: 20200219
  3. REVLIMID [Suspect]
     Active Substance: LENALIDOMIDE
     Dosage: EVERY OTHER DAY FOR 28 DAYS
     Route: 048
     Dates: start: 20200220, end: 20200519
  4. REVLIMID [Suspect]
     Active Substance: LENALIDOMIDE
     Dosage: EVERY OTHER DAY FOR 3 WEEKS FOLLOWED BY 1 WEEK OFF
     Route: 048
     Dates: start: 20200520, end: 20200612
  5. REVLIMID [Suspect]
     Active Substance: LENALIDOMIDE
     Dosage: EVERY OTHER DAY FOR 21 DAYS
     Route: 048
     Dates: start: 20201006, end: 20210202
  6. REVLIMID [Suspect]
     Active Substance: LENALIDOMIDE
     Dosage: EVERY OTHER DAY FOR 21 DAYS, 1 WEEK OFF
     Route: 048
     Dates: start: 20210512, end: 20210904
  7. REVLIMID [Suspect]
     Active Substance: LENALIDOMIDE
     Dosage: 28 DAYS CONTINUOUS
     Route: 048
     Dates: start: 20220119, end: 20220218
  8. VELCADE [Suspect]
     Active Substance: BORTEZOMIB
     Indication: Product used for unknown indication
     Dosage: 4 WEEKS ON 1 WEEK OFF
     Route: 058
     Dates: start: 20190327, end: 20190327
  9. VELCADE [Suspect]
     Active Substance: BORTEZOMIB
     Dosage: 4 WEEKS ON 1 WEEK OFF
     Route: 058
     Dates: start: 20180717, end: 20190326
  10. DECADRON [Concomitant]
     Active Substance: DEXAMETHASONE
     Indication: Product used for unknown indication
     Route: 048
     Dates: start: 20180917, end: 20190113
  11. DECADRON [Concomitant]
     Active Substance: DEXAMETHASONE
     Route: 048
     Dates: start: 20190115, end: 20191018
  12. DECADRON [Concomitant]
     Active Substance: DEXAMETHASONE
     Route: 048
     Dates: start: 20180717, end: 20180916

REACTIONS (1)
  - Toxicity to various agents [Unknown]
